FAERS Safety Report 6072361-1 (Version None)
Quarter: 2009Q1

REPORT INFORMATION
  Report Type: 
  Country: None (occurrence: None)
  Receive Date: 20090210
  Receipt Date: 20090209
  Transmission Date: 20090719
  Serious: Yes (Hospitalization, Disabling, Other)
  Sender: FDA-Public Use
  Company Number: PHHO2007NO05547

PATIENT
  Sex: Male

DRUGS (2)
  1. DIOVAN T30230+ [Suspect]
     Indication: HYPERTENSION
     Dosage: DOUBLE BLIND
     Dates: start: 20070319, end: 20070329
  2. AMLODIPINE [Suspect]

REACTIONS (5)
  - GASTROENTERITIS [None]
  - HYPOTENSION [None]
  - RESPIRATORY ARREST [None]
  - SYNCOPE [None]
  - VOMITING [None]
